FAERS Safety Report 6263678-6 (Version None)
Quarter: 2009Q3

REPORT INFORMATION
  Report Type: 
  Country: None (occurrence: None)
  Receive Date: 20090702
  Receipt Date: 20090417
  Transmission Date: 20100115
  Serious: No
  Sender: FDA-Public Use
  Company Number: 1000005889

PATIENT
  Age: 42 Year
  Sex: Female

DRUGS (2)
  1. BYSTOLIC [Suspect]
     Indication: TACHYCARDIA
     Dosage: 2.5 MG (2.5 MG, 1 IN 1 D), ORAL
     Route: 048
     Dates: start: 20090412
  2. ATIVAN [Concomitant]

REACTIONS (4)
  - BLEPHAROSPASM [None]
  - EYE PAIN [None]
  - OEDEMA PERIPHERAL [None]
  - PAIN IN EXTREMITY [None]
